FAERS Safety Report 19738324 (Version 3)
Quarter: 2021Q3

REPORT INFORMATION
  Report Type: Spontaneous
  Country: EC (occurrence: EC)
  Receive Date: 20210824
  Receipt Date: 20210910
  Transmission Date: 20211014
  Serious: Yes (Death, Hospitalization, Other)
  Sender: FDA-Public Use
  Company Number: EC-AMGEN-ECUSP2021129320

PATIENT
  Sex: Female

DRUGS (1)
  1. NEULASTIM [Suspect]
     Active Substance: PEGFILGRASTIM
     Indication: PRODUCT USED FOR UNKNOWN INDICATION
     Dosage: 6 MILLIGRAM, AFTER CHEMO
     Route: 058
     Dates: end: 2021

REACTIONS (2)
  - Pancytopenia [Fatal]
  - Neutropenia [Fatal]

NARRATIVE: CASE EVENT DATE: 2021
